FAERS Safety Report 10717415 (Version 1)
Quarter: 2015Q1

REPORT INFORMATION
  Report Type: Spontaneous
  Country: PT (occurrence: PT)
  Receive Date: 20150116
  Receipt Date: 20150116
  Transmission Date: 20150721
  Serious: Yes (Other)
  Sender: FDA-Public Use
  Company Number: PT-PFIZER INC-2014356252

PATIENT
  Age: 42 Year
  Sex: Female

DRUGS (1)
  1. CLINDAMYCIN HCL [Suspect]
     Active Substance: CLINDAMYCIN HYDROCHLORIDE
     Indication: DIABETIC FOOT INFECTION
     Dosage: UNK

REACTIONS (3)
  - Oesophageal mucosal dissection [Recovering/Resolving]
  - Oesophagitis chemical [Recovering/Resolving]
  - Toxicity to various agents [Unknown]
